FAERS Safety Report 23838185 (Version 1)
Quarter: 2024Q2

REPORT INFORMATION
  Report Type: Spontaneous
  Country: BR (occurrence: BR)
  Receive Date: 20240509
  Receipt Date: 20240509
  Transmission Date: 20240717
  Serious: Yes (Other)
  Sender: FDA-Public Use
  Company Number: BR-002147023-NVSC2024BR097805

PATIENT
  Age: 72 Year
  Sex: Female

DRUGS (1)
  1. BETOPTIC [Suspect]
     Active Substance: BETAXOLOL HYDROCHLORIDE
     Indication: Product used for unknown indication
     Dosage: 0.5 % SOLUTION VIAL WITH 5ML (TWICE A DAY A DAY, IN THE MORNING AND AFTERNOON) (MORE THAN 20 YEARS A
     Route: 065

REACTIONS (2)
  - Cerebrovascular accident [Not Recovered/Not Resolved]
  - Product availability issue [Unknown]
